FAERS Safety Report 24741752 (Version 1)
Quarter: 2024Q4

REPORT INFORMATION
  Report Type: Report from Study
  Country: US (occurrence: US)
  Receive Date: 20241217
  Receipt Date: 20241217
  Transmission Date: 20250114
  Serious: Yes (Other)
  Sender: AUROBINDO
  Company Number: US-AUROBINDO-AUR-APL-2024-061795

PATIENT

DRUGS (2)
  1. WARFARIN [Suspect]
     Active Substance: WARFARIN
     Indication: Cardiac valve prosthesis user
     Dosage: LOW DOSE
     Route: 065
  2. ASPIRIN [Suspect]
     Active Substance: ASPIRIN
     Indication: Cardiac valve prosthesis user
     Dosage: 75-100 MG, DAILY
     Route: 065

REACTIONS (2)
  - Embolism [Unknown]
  - Cerebrovascular accident [Unknown]
